FAERS Safety Report 23735125 (Version 2)
Quarter: 2024Q2

REPORT INFORMATION
  Report Type: Spontaneous
  Country: TR (occurrence: TR)
  Receive Date: 20240412
  Receipt Date: 20240514
  Transmission Date: 20240715
  Serious: Yes (Other)
  Sender: FDA-Public Use
  Company Number: TR-ASTELLAS-2024US010473

PATIENT
  Age: 73 Year
  Sex: Male

DRUGS (5)
  1. XTANDI [Suspect]
     Active Substance: ENZALUTAMIDE
     Indication: Hormone-dependent prostate cancer
     Route: 048
     Dates: start: 20220630
  2. XTANDI [Suspect]
     Active Substance: ENZALUTAMIDE
     Indication: Metastases to bone
     Dosage: 160 MG, ONCE DAILY (STARTED AGAIN AFTER 1 WEEK)
     Route: 048
  3. CASODEX [Suspect]
     Active Substance: BICALUTAMIDE
     Indication: Metastases to bone
     Route: 048
     Dates: start: 20220615, end: 20220629
  4. LEUPROLIDE ACETATE [Suspect]
     Active Substance: ISOPROPYL ALCOHOL\LEUPROLIDE ACETATE
     Indication: Hormone-dependent prostate cancer
     Dosage: 11.25 MG, ONCE IN EVERY 3 MONTHS
     Route: 058
     Dates: start: 20220615
  5. LEUPROLIDE ACETATE [Suspect]
     Active Substance: ISOPROPYL ALCOHOL\LEUPROLIDE ACETATE
     Indication: Metastases to bone
     Dosage: 11.25 MG, ONCE IN EVERY 3 MONTHS (STARTED AGAIN AFTER 1 WEEK)
     Route: 058

REACTIONS (3)
  - Periorbital oedema [Recovered/Resolved]
  - Face oedema [Recovered/Resolved]
  - Malignant neoplasm progression [Not Recovered/Not Resolved]

NARRATIVE: CASE EVENT DATE: 20230313
